FAERS Safety Report 9960153 (Version 1)
Quarter: 2014Q1

REPORT INFORMATION
  Report Type: Spontaneous
  Country: PR (occurrence: PR)
  Receive Date: 20140305
  Receipt Date: 20140305
  Transmission Date: 20141002
  Serious: No
  Sender: FDA-Public Use
  Company Number: PR-ABBVIE-13P-131-1105767-00

PATIENT
  Sex: Female
  Weight: 90.8 kg

DRUGS (9)
  1. HUMIRA [Suspect]
     Indication: CROHN^S DISEASE
     Route: 058
     Dates: start: 201305
  2. IMURAN [Concomitant]
     Indication: CROHN^S DISEASE
     Dosage: 2 TABLETS DAILY
     Route: 048
  3. PREDNISONE [Concomitant]
     Indication: CROHN^S DISEASE
     Route: 048
  4. ZANTAC [Concomitant]
     Indication: DYSPEPSIA
     Route: 048
  5. PREVACID [Concomitant]
     Indication: DYSPEPSIA
     Route: 048
  6. DIGEX NF [Concomitant]
     Indication: PRODUCT USED FOR UNKNOWN INDICATION
     Dosage: AT NIGHT
     Route: 048
  7. LUNESTA [Concomitant]
     Indication: INSOMNIA
     Dosage: AT NIGHT
     Route: 048
  8. NEURIN FL [Concomitant]
     Indication: VITAMIN SUPPLEMENTATION
     Route: 060
  9. VITAMIN D [Concomitant]
     Indication: VITAMIN SUPPLEMENTATION
     Route: 048

REACTIONS (1)
  - Injection site pain [Recovered/Resolved]
